FAERS Safety Report 5229731-0 (Version None)
Quarter: 2007Q1

REPORT INFORMATION
  Report Type: 
  Country: None (occurrence: None)
  Receive Date: 20070206
  Receipt Date: 20070125
  Transmission Date: 20070707
  Serious: Yes (Hospitalization)
  Sender: FDA-Public Use
  Company Number: PHHO2007US01969

PATIENT
  Age: 78 Year
  Sex: Female
  Weight: 72.6 kg

DRUGS (6)
  1. LOTREL [Suspect]
     Indication: HYPERTENSION
     Dosage: LEVEL 3
     Route: 048
     Dates: start: 20040611, end: 20040711
  2. LOTREL [Suspect]
     Dosage: LEVEL 2
     Route: 048
     Dates: start: 20040712, end: 20040810
  3. LOTREL [Suspect]
     Dosage: LEVEL 3
     Route: 048
     Dates: start: 20040811, end: 20070122
  4. TOPROL-XL [Concomitant]
     Indication: CORONARY ARTERY DISEASE
     Dosage: 150 MG, QD
     Route: 048
     Dates: start: 19990430
  5. VYTORIN [Concomitant]
     Indication: DYSLIPIDAEMIA
     Dosage: 10/40 MG, QHS
     Route: 048
     Dates: start: 20070119
  6. ASPIRIN [Concomitant]
     Indication: CORONARY ARTERY DISEASE
     Dosage: 81 MG, QD
     Route: 048
     Dates: start: 19930614

REACTIONS (5)
  - ASTHENIA [None]
  - CONFUSIONAL STATE [None]
  - DECREASED APPETITE [None]
  - HYPERTENSION [None]
  - HYPONATRAEMIA [None]
